FAERS Safety Report 6170951-9 (Version None)
Quarter: 2009Q2

REPORT INFORMATION
  Report Type: 
  Country: None (occurrence: None)
  Receive Date: 20090427
  Receipt Date: 20090427
  Transmission Date: 20091009
  Serious: No
  Sender: FDA-Public Use
  Company Number: None

PATIENT
  Age: 97 Year
  Sex: Female
  Weight: 56 kg

DRUGS (15)
  1. INSULIN GLARGINE [Suspect]
     Indication: TYPE 2 DIABETES MELLITUS
     Dosage: 10 UNITS SQ QHS
     Route: 058
     Dates: start: 20081129, end: 20081202
  2. INSULIN ASPART [Suspect]
     Indication: TYPE 2 DIABETES MELLITUS
     Dosage: SSI-M
     Dates: start: 20081129
  3. ADVAIR HFA [Concomitant]
  4. ASPIRIN [Concomitant]
  5. ATORVASTATIN [Concomitant]
  6. FEXOFENADINE [Concomitant]
  7. HYDROCHLOROTHIAZIDE [Concomitant]
  8. HEPARIN [Concomitant]
  9. METOPROLOL SUCCINATE [Concomitant]
  10. MONTELUKAST [Concomitant]
  11. M.V.I. [Concomitant]
  12. NITROGLYCERIN [Concomitant]
  13. RANITIDINE [Concomitant]
  14. RISPERIDONE [Concomitant]
  15. VALSARTAN [Concomitant]

REACTIONS (5)
  - BLOOD GLUCOSE DECREASED [None]
  - BLOOD GLUCOSE INCREASED [None]
  - CONFUSIONAL STATE [None]
  - FALL [None]
  - HYPERHIDROSIS [None]
